FAERS Safety Report 9279046 (Version 1)
Quarter: 2013Q2

REPORT INFORMATION
  Report Type: Spontaneous
  Country: US (occurrence: US)
  Receive Date: 20130508
  Receipt Date: 20130508
  Transmission Date: 20140414
  Serious: Yes (Other)
  Sender: FDA-Public Use
  Company Number: PHEH2013US010103

PATIENT
  Sex: Female

DRUGS (4)
  1. RITALIN [Suspect]
     Dosage: 1 DF, QD
  2. CONCERTA [Suspect]
     Dosage: 1 DF, QD
  3. MELATONIN [Concomitant]
     Dosage: UNK UKN, UNK
  4. MULTIVITAMIN//VITAMINS NOS [Concomitant]
     Dosage: UNK UKN, UNK

REACTIONS (9)
  - Ovarian cyst [Unknown]
  - Malaise [Unknown]
  - Swelling [Unknown]
  - Oropharyngeal pain [Unknown]
  - Retching [Unknown]
  - Drug administered to patient of inappropriate age [Unknown]
  - Somnolence [Unknown]
  - Anxiety [Unknown]
  - Nausea [Unknown]
